FAERS Safety Report 8360477-6 (Version None)
Quarter: 2012Q2

REPORT INFORMATION
  Report Type: 
  Country: None (occurrence: None)
  Receive Date: 20120515
  Receipt Date: 20120512
  Transmission Date: 20120825
  Serious: No
  Sender: FDA-Public Use
  Company Number: US-BAYER-2012-046949

PATIENT
  Age: 43 Year
  Sex: Female

DRUGS (3)
  1. BETASERON [Suspect]
     Indication: MULTIPLE SCLEROSIS
     Dosage: 0.188 MG,WEEKS 5-6
     Route: 058
     Dates: start: 20120301
  2. BETASERON [Suspect]
     Dosage: 0.125 MG, WEEKS 3-4
     Route: 058
     Dates: start: 20120301
  3. BETASERON [Suspect]
     Dosage: 0.063 MG, WEEKS 1-2
     Route: 058
     Dates: start: 20120301

REACTIONS (5)
  - MYALGIA [None]
  - MUSCULOSKELETAL STIFFNESS [None]
  - GAIT DISTURBANCE [None]
  - FATIGUE [None]
  - PAIN [None]
